FAERS Safety Report 16403891 (Version 15)
Quarter: 2021Q3

REPORT INFORMATION
  Report Type: Spontaneous
  Country: US (occurrence: US)
  Receive Date: 20190607
  Receipt Date: 20210720
  Transmission Date: 20211014
  Serious: Yes (Hospitalization, Other)
  Sender: FDA-Public Use
  Company Number: US-CATALYST PHARMACEUTICALS, INC-2019CAT00057

PATIENT
  Age: 77 Year
  Sex: Female
  Weight: 62.59 kg

DRUGS (46)
  1. PREDNISONE. [Suspect]
     Active Substance: PREDNISONE
     Dosage: 10 MG, 1X/DAY
  2. ARMOUR THYROID [Suspect]
     Active Substance: THYROID, PORCINE
     Dosage: 90 MG, 1X/DAY
  3. FIRDAPSE [Suspect]
     Active Substance: AMIFAMPRIDINE PHOSPHATE
     Indication: MYASTHENIC SYNDROME
     Dosage: 10 MG, 2X/DAY
     Route: 048
     Dates: start: 20190308
  4. FIRDAPSE [Suspect]
     Active Substance: AMIFAMPRIDINE PHOSPHATE
     Dosage: 10 MG, 1X/DAY
     Route: 048
     Dates: start: 2019
  5. IVIG (INTRAVENOUS IMMUNOGLOBULIN) [Suspect]
     Active Substance: HUMAN IMMUNOGLOBULIN G
     Dosage: EVERY 3 WEEKS
     Route: 042
  6. ARMOUR THYROID [Suspect]
     Active Substance: THYROID, PORCINE
     Dosage: 90 MG, 1X/DAY
  7. MIRAPEX [Concomitant]
     Active Substance: PRAMIPEXOLE DIHYDROCHLORIDE
     Dosage: 1.5 MG, 3X/DAY
  8. LOSARTAN. [Concomitant]
     Active Substance: LOSARTAN
     Indication: HYPERTENSION
     Dosage: 100 MG, 1X/DAY
  9. FOLIVANE?F [Concomitant]
     Active Substance: IRON\VITAMINS
     Dosage: UNK, 1X/DAY
  10. FIRDAPSE [Suspect]
     Active Substance: AMIFAMPRIDINE PHOSPHATE
     Dosage: 10 MG, 1X/DAY (EVENING)
     Route: 048
  11. FIRDAPSE [Suspect]
     Active Substance: AMIFAMPRIDINE PHOSPHATE
     Dosage: 10 MG, 1X/DAY (EVENING)
     Route: 048
  12. MIRAPEX [Concomitant]
     Active Substance: PRAMIPEXOLE DIHYDROCHLORIDE
     Dosage: 1.5 MG, 3X/DAY
  13. FIORICET [Concomitant]
     Active Substance: ACETAMINOPHEN\BUTALBITAL\CAFFEINE
     Indication: MIGRAINE
     Dosage: UNK, AS NEEDED
  14. MELATONIN [Concomitant]
     Active Substance: MELATONIN
     Dosage: 6?9 MG, 1X/DAY BEFORE BEDTIME
  15. UNSPECIFIED MEDICATION FOR RESTLESS LEGS [Concomitant]
     Dosage: UNK
  16. PROMETHAZINE [Concomitant]
     Active Substance: PROMETHAZINE HYDROCHLORIDE
     Dosage: 25 MG, AS NEEDED
  17. SOLAZINE [Concomitant]
  18. FIRDAPSE [Suspect]
     Active Substance: AMIFAMPRIDINE PHOSPHATE
     Dosage: 10 MG, 1X/DAY IN THE AFTERNOON
     Route: 048
     Dates: start: 2019, end: 2019
  19. FIRDAPSE [Suspect]
     Active Substance: AMIFAMPRIDINE PHOSPHATE
     Dosage: 15 MG, 1X/DAY (MORNING)
     Route: 048
     Dates: start: 2019
  20. FIRDAPSE [Suspect]
     Active Substance: AMIFAMPRIDINE PHOSPHATE
     Dosage: 15 MG, 1X/DAY (MORNING)
     Route: 048
  21. OMEPRAZOLE. [Concomitant]
     Active Substance: OMEPRAZOLE
     Dosage: 40 MG, 1X/DAY
  22. XANAX [Concomitant]
     Active Substance: ALPRAZOLAM
     Dosage: 0.25 MG, 1X/DAY (AT BEDTIME)
  23. MIRAPEX [Concomitant]
     Active Substance: PRAMIPEXOLE DIHYDROCHLORIDE
     Dosage: 1.0 MG, 3X/DAY
  24. SULCRALFATE [Concomitant]
     Active Substance: SUCRALFATE
     Dosage: UNK, 2X/DAY
  25. MAGNESIUM [Concomitant]
     Active Substance: MAGNESIUM
     Dosage: 500 MG
  26. FIRDAPSE [Suspect]
     Active Substance: AMIFAMPRIDINE PHOSPHATE
     Dosage: 15 MG, 1X/DAY IN THE MORNING
     Route: 048
     Dates: start: 2019, end: 2019
  27. FIRDAPSE [Suspect]
     Active Substance: AMIFAMPRIDINE PHOSPHATE
     Dosage: 20 MG, 2X/DAY
     Route: 048
     Dates: start: 2019, end: 2019
  28. FIRDAPSE [Suspect]
     Active Substance: AMIFAMPRIDINE PHOSPHATE
     Dosage: 10 MG, 1X/DAY (EVENING)
     Route: 048
     Dates: start: 2019
  29. FIRDAPSE [Suspect]
     Active Substance: AMIFAMPRIDINE PHOSPHATE
     Dosage: 15 MG, 2X/DAY
     Route: 048
  30. FIRDAPSE [Suspect]
     Active Substance: AMIFAMPRIDINE PHOSPHATE
     Dosage: 10 MG, 2X/DAY
     Route: 048
  31. FIRDAPSE [Suspect]
     Active Substance: AMIFAMPRIDINE PHOSPHATE
     Dosage: 15 MG, 1X/DAY (MORNING)
     Route: 048
  32. CYCLOBENZAPRINE. [Suspect]
     Active Substance: CYCLOBENZAPRINE
     Indication: NECK PAIN
     Dosage: 10 MG, 1X/DAY (AT BEDTIME)
  33. PAROXETINE. [Concomitant]
     Active Substance: PAROXETINE
     Dosage: 40 MG, 1X/DAY
  34. LEVOTHYROXINE. [Concomitant]
     Active Substance: LEVOTHYROXINE
     Dosage: 150 ?G, 1X/DAY
  35. LORATADINE. [Concomitant]
     Active Substance: LORATADINE
     Dosage: 10 MG, AS NEEDED
  36. VESICARE [Concomitant]
     Active Substance: SOLIFENACIN SUCCINATE
     Dosage: 5 MG, 1X/DAY
  37. BUPROPION. [Concomitant]
     Active Substance: BUPROPION
     Dosage: 100 MG, 2X/DAY
  38. FIRDAPSE [Suspect]
     Active Substance: AMIFAMPRIDINE PHOSPHATE
     Dosage: 15 MG, 1X/DAY
     Route: 048
     Dates: start: 2019, end: 2019
  39. MIRAPEX [Concomitant]
     Active Substance: PRAMIPEXOLE DIHYDROCHLORIDE
     Dosage: 4 TO 5 A DAY
  40. UNSPECIFIED MEDICATION FOR RESTLESS LEGS [Concomitant]
     Dosage: UNK
     Dates: start: 2019
  41. GABAPENTIN. [Concomitant]
     Active Substance: GABAPENTIN
     Dosage: 100 MG, 3X/DAY
  42. GABAPENTIN. [Concomitant]
     Active Substance: GABAPENTIN
     Dosage: 100 MG, 3X/DAY
  43. FIRDAPSE [Suspect]
     Active Substance: AMIFAMPRIDINE PHOSPHATE
     Dosage: 25 MG, 2X/DAY
     Route: 048
     Dates: start: 2019, end: 2019
  44. ARMOUR THYROID [Suspect]
     Active Substance: THYROID, PORCINE
     Dosage: 120 MG, 1X/DAY
     Dates: start: 20200318
  45. GABAPENTIN. [Concomitant]
     Active Substance: GABAPENTIN
     Dosage: INCREASED DOSE
  46. PAXIL [Concomitant]
     Active Substance: PAROXETINE HYDROCHLORIDE
     Dosage: UNK

REACTIONS (39)
  - Diplopia [Not Recovered/Not Resolved]
  - Migraine [Not Recovered/Not Resolved]
  - Fatigue [Not Recovered/Not Resolved]
  - Hypersomnia [Recovered/Resolved]
  - Wound haemorrhage [Recovering/Resolving]
  - Dyspnoea [Not Recovered/Not Resolved]
  - Musculoskeletal pain [Not Recovered/Not Resolved]
  - Arthralgia [Not Recovered/Not Resolved]
  - Illness [Recovering/Resolving]
  - Dysphonia [Not Recovered/Not Resolved]
  - Insomnia [Not Recovered/Not Resolved]
  - Gastrointestinal haemorrhage [Not Recovered/Not Resolved]
  - Drug ineffective [Recovering/Resolving]
  - Motor dysfunction [Not Recovered/Not Resolved]
  - Torticollis [Not Recovered/Not Resolved]
  - Feeling abnormal [Unknown]
  - Eye movement disorder [Not Recovered/Not Resolved]
  - Feeling cold [Recovered/Resolved]
  - Cellulitis [Recovering/Resolving]
  - Intentional product use issue [Not Recovered/Not Resolved]
  - Discomfort [Not Recovered/Not Resolved]
  - Somnambulism [Not Recovered/Not Resolved]
  - Back pain [Not Recovered/Not Resolved]
  - Gastric ulcer haemorrhage [Recovering/Resolving]
  - Haemoglobin decreased [Recovering/Resolving]
  - Wound [Recovering/Resolving]
  - Restless legs syndrome [Not Recovered/Not Resolved]
  - Hypothyroidism [Unknown]
  - Visual impairment [Not Recovered/Not Resolved]
  - Haematochezia [Unknown]
  - Fall [Not Recovered/Not Resolved]
  - Vision blurred [Not Recovered/Not Resolved]
  - Unevaluable event [Not Recovered/Not Resolved]
  - Wound infection [Not Recovered/Not Resolved]
  - Muscle twitching [Not Recovered/Not Resolved]
  - Neck pain [Not Recovered/Not Resolved]
  - Chest pain [Recovered/Resolved]
  - Limb discomfort [Unknown]
  - Osteoarthritis [Not Recovered/Not Resolved]

NARRATIVE: CASE EVENT DATE: 2019
